FAERS Safety Report 7020026-1 (Version None)
Quarter: 2010Q3

REPORT INFORMATION
  Report Type: 
  Country: None (occurrence: None)
  Receive Date: 20100929
  Receipt Date: 20100921
  Transmission Date: 20110219
  Serious: Yes (Other)
  Sender: FDA-Public Use
  Company Number: US-JNJFOC-20100903515

PATIENT
  Sex: Male
  Weight: 76.66 kg

DRUGS (2)
  1. DURAGESIC-100 [Suspect]
     Indication: BACK PAIN
     Route: 062
  2. DURAGESIC-100 [Suspect]
     Route: 062

REACTIONS (6)
  - BLOOD TESTOSTERONE DECREASED [None]
  - FATIGUE [None]
  - HYPERTENSION [None]
  - MUSCLE SPASMS [None]
  - NEURALGIA [None]
  - WRONG TECHNIQUE IN DRUG USAGE PROCESS [None]
